FAERS Safety Report 7941416-6 (Version None)
Quarter: 2011Q4

REPORT INFORMATION
  Report Type: 
  Country: None (occurrence: None)
  Receive Date: 20111128
  Receipt Date: 20101019
  Transmission Date: 20120403
  Serious: No
  Sender: FDA-Public Use
  Company Number: US-MYLANLABS-2011S1000184

PATIENT
  Age: 27 Year
  Sex: Female

DRUGS (5)
  1. DURACLON [Suspect]
     Indication: PAIN
  2. PRIALT [Suspect]
     Indication: PAIN
  3. FENTANYL [Suspect]
     Indication: PAIN
  4. DILAUDID [Suspect]
     Indication: PAIN
  5. GABAPENTIN [Suspect]
     Indication: PAIN

REACTIONS (2)
  - PAIN [None]
  - DRUG INEFFECTIVE [None]
